FAERS Safety Report 7051189-X (Version None)
Quarter: 2010Q4

REPORT INFORMATION
  Report Type: 
  Country: None (occurrence: None)
  Receive Date: 20101019
  Receipt Date: 20101006
  Transmission Date: 20110411
  Serious: Yes (Other)
  Sender: FDA-Public Use
  Company Number: PHHY2010IL68205

PATIENT
  Sex: Female

DRUGS (1)
  1. EXJADE [Suspect]
     Route: 048

REACTIONS (1)
  - CONFUSIONAL STATE [None]
